FAERS Safety Report 23134458 (Version 1)
Quarter: 2023Q4

REPORT INFORMATION
  Report Type: Spontaneous
  Country: US (occurrence: None)
  Receive Date: 20231031
  Receipt Date: 20231031
  Transmission Date: 20240109
  Serious: Yes (Hospitalization, Other)
  Sender: FDA-Public Use
  Company Number: None

PATIENT
  Age: 40 Year
  Sex: Female
  Weight: 87.75 kg

DRUGS (3)
  1. EFFEXOR [Suspect]
     Active Substance: VENLAFAXINE HYDROCHLORIDE
     Indication: Premenstrual dysphoric disorder
     Dates: start: 20031001, end: 20160512
  2. Pregabalin 225 mg (2xday) [Concomitant]
  3. Sertraline 50 mg (1xday) [Concomitant]

REACTIONS (4)
  - Seizure [None]
  - Electric shock sensation [None]
  - Drug withdrawal syndrome [None]
  - Drug dependence [None]

NARRATIVE: CASE EVENT DATE: 20150829
